FAERS Safety Report 4748522-8 (Version None)
Quarter: 2005Q3

REPORT INFORMATION
  Report Type: 
  Country: None (occurrence: None)
  Receive Date: 20050818
  Receipt Date: 20050805
  Transmission Date: 20060218
  Serious: Yes (Other)
  Sender: FDA-Public Use
  Company Number: 2005111794

PATIENT
  Sex: Female

DRUGS (2)
  1. ACTIFED [Suspect]
     Dosage: ONE TABLET DAILY, ORAL
     Route: 048
     Dates: start: 19860101
  2. ANTIHYPERTENSIVES (ANTIHYPERTENSIVES) [Concomitant]

REACTIONS (2)
  - DRUG DEPENDENCE [None]
  - VOMITING [None]
